FAERS Safety Report 9058514 (Version 2)
Quarter: 2013Q1

REPORT INFORMATION
  Report Type: Spontaneous
  Country: BR (occurrence: BR)
  Receive Date: 20130211
  Receipt Date: 20130322
  Transmission Date: 20140127
  Serious: Yes (Other)
  Sender: FDA-Public Use
  Company Number: BR-BRISTOL-MYERS SQUIBB COMPANY-17343690

PATIENT
  Sex: Female

DRUGS (1)
  1. APROZIDE [Suspect]
     Dosage: 1DF= 300MG+12.5MG?TABS
     Route: 048

REACTIONS (1)
  - Neoplasm malignant [Unknown]
